FAERS Safety Report 13950672 (Version 2)
Quarter: 2017Q3

REPORT INFORMATION
  Report Type: Spontaneous
  Country: BE (occurrence: BE)
  Receive Date: 20170908
  Receipt Date: 20170920
  Transmission Date: 20171128
  Serious: Yes (Other)
  Sender: FDA-Public Use
  Company Number: BE-BAYER-2017-168354

PATIENT
  Sex: Male

DRUGS (1)
  1. XOFIGO [Suspect]
     Active Substance: RADIUM RA-223 DICHLORIDE
     Route: 042

REACTIONS (2)
  - Metastases to liver [None]
  - Metastases to bone [None]
